FAERS Safety Report 18869471 (Version 1)
Quarter: 2021Q1

REPORT INFORMATION
  Report Type: Spontaneous
  Country: US (occurrence: US)
  Receive Date: 20210210
  Receipt Date: 20210210
  Transmission Date: 20210420
  Serious: Yes (Other)
  Sender: FDA-Public Use
  Company Number: US-ROCHE-2766012

PATIENT
  Age: 49 Year
  Sex: Female
  Weight: 53.57 kg

DRUGS (3)
  1. VITAMIN C [Concomitant]
     Active Substance: ASCORBIC ACID
     Dosage: LOW DOSE
     Route: 048
     Dates: start: 202005
  2. XOLAIR [Suspect]
     Active Substance: OMALIZUMAB
     Indication: URTICARIA
     Route: 058
     Dates: start: 202005
  3. VITAMIN D [Concomitant]
     Active Substance: VITAMIN D NOS

REACTIONS (2)
  - Antinuclear antibody positive [Not Recovered/Not Resolved]
  - Lupus-like syndrome [Unknown]

NARRATIVE: CASE EVENT DATE: 20210122
